FAERS Safety Report 23152556 (Version 1)
Quarter: 2023Q4

REPORT INFORMATION
  Report Type: Report from Study
  Country: US (occurrence: US)
  Receive Date: 20231107
  Receipt Date: 20231107
  Transmission Date: 20240109
  Serious: Yes (Other)
  Sender: FDA-Public Use
  Company Number: US-ABBVIE-5483453

PATIENT
  Sex: Male
  Weight: 136.07 kg

DRUGS (1)
  1. SKYRIZI [Suspect]
     Active Substance: RISANKIZUMAB-RZAA
     Indication: Crohn^s disease
     Route: 058
     Dates: start: 202211, end: 202307

REACTIONS (1)
  - Fistula [Recovering/Resolving]

NARRATIVE: CASE EVENT DATE: 20220101
